FAERS Safety Report 11203688 (Version 2)
Quarter: 2015Q3

REPORT INFORMATION
  Report Type: Spontaneous
  Country: NO (occurrence: NO)
  Receive Date: 20150619
  Receipt Date: 20150721
  Transmission Date: 20151125
  Serious: Yes (Other)
  Sender: FDA-Public Use
  Company Number: NO-TAKEDA-2015TUS007925

PATIENT
  Sex: Female

DRUGS (1)
  1. ENTYVIO [Suspect]
     Active Substance: VEDOLIZUMAB
     Indication: GRAFT VERSUS HOST DISEASE IN GASTROINTESTINAL TRACT
     Dosage: UNK
     Route: 065
     Dates: start: 201505

REACTIONS (5)
  - Hepatic failure [Unknown]
  - Renal failure [Not Recovered/Not Resolved]
  - Infusion related reaction [Unknown]
  - Off label use [Unknown]
  - Sepsis [Unknown]
